FAERS Safety Report 8880358 (Version 6)
Quarter: 2013Q2

REPORT INFORMATION
  Report Type: Spontaneous
  Country: US (occurrence: US)
  Receive Date: 20121101
  Receipt Date: 20130507
  Transmission Date: 20140414
  Serious: Yes (Other)
  Sender: FDA-Public Use
  Company Number: US-PFIZER INC-2012266527

PATIENT
  Age: 75 Year
  Sex: Female

DRUGS (9)
  1. XALATAN [Suspect]
     Indication: OPEN ANGLE GLAUCOMA
     Dosage: 1 GTT EACH EYE , 1X/DAY AT  HS
     Route: 047
     Dates: start: 20090406
  2. XALATAN [Suspect]
     Dosage: 1 GTT, Q HS, BOTH EYES
     Route: 061
     Dates: start: 20090406
  3. NEXIUM [Concomitant]
     Dosage: UNK
  4. LISINOPRIL [Concomitant]
     Dosage: UNK
  5. LEVOTHYROXINE [Concomitant]
     Dosage: UNK
  6. CITRACAL [Concomitant]
     Dosage: UNK
  7. VITAMIN B COMPLEX WITH C [Concomitant]
     Dosage: UNK
  8. CALCIUM [Concomitant]
     Dosage: UNK
  9. IRON SULFATE [Concomitant]
     Dosage: UNK

REACTIONS (2)
  - Retinal tear [Recovered/Resolved]
  - Nervousness [Unknown]
